FAERS Safety Report 18030257 (Version 1)
Quarter: 2020Q3

REPORT INFORMATION
  Report Type: Spontaneous
  Country: US (occurrence: US)
  Receive Date: 20200715
  Receipt Date: 20200715
  Transmission Date: 20201103
  Serious: No
  Sender: FDA-Public Use
  Company Number: None

PATIENT
  Age: 58 Year
  Sex: Female

DRUGS (1)
  1. SPRYCEL [Suspect]
     Active Substance: DASATINIB
     Route: 048
     Dates: start: 201807

REACTIONS (8)
  - Multiple allergies [None]
  - Ocular hyperaemia [None]
  - Diarrhoea [None]
  - Headache [None]
  - Hypoaesthesia [None]
  - Eye haemorrhage [None]
  - Lip swelling [None]
  - Pharyngeal swelling [None]

NARRATIVE: CASE EVENT DATE: 20200305
